FAERS Safety Report 7219435-7 (Version None)
Quarter: 2011Q1

REPORT INFORMATION
  Report Type: 
  Country: None (occurrence: None)
  Receive Date: 20110111
  Receipt Date: 20110104
  Transmission Date: 20110831
  Serious: Yes (Other)
  Sender: FDA-Public Use
  Company Number: DE-SANOFI-AVENTIS-2010SA050121

PATIENT
  Sex: Male
  Weight: 147 kg

DRUGS (5)
  1. TELFAST [Suspect]
     Route: 048
     Dates: start: 20041011, end: 20050601
  2. DICLOFENAC [Concomitant]
  3. ANTIHYPERTENSIVES [Concomitant]
  4. IBUPROFEN [Concomitant]
  5. CHOLESTEROL- AND TRIGLYCERIDE REDUCERS [Concomitant]

REACTIONS (12)
  - VISUAL IMPAIRMENT [None]
  - LIBIDO DECREASED [None]
  - MEMORY IMPAIRMENT [None]
  - SPLEEN DISORDER [None]
  - DIABETES MELLITUS [None]
  - PERFORMANCE STATUS DECREASED [None]
  - UNEVALUABLE EVENT [None]
  - BLOOD PRESSURE INCREASED [None]
  - CHONDROLYSIS [None]
  - LIVER DISORDER [None]
  - INTRAOCULAR PRESSURE INCREASED [None]
  - METABOLIC DISORDER [None]
